FAERS Safety Report 17366340 (Version 1)
Quarter: 2020Q1

REPORT INFORMATION
  Report Type: Spontaneous
  Country: US (occurrence: US)
  Receive Date: 20200204
  Receipt Date: 20200204
  Transmission Date: 20200409
  Serious: No
  Sender: FDA-Public Use
  Company Number: US-SA-2020SA026822

PATIENT
  Sex: Female

DRUGS (1)
  1. DUPIXENT [Suspect]
     Active Substance: DUPILUMAB
     Indication: PRODUCT USE IN UNAPPROVED INDICATION
     Dosage: 300 MG, QOW
     Route: 058

REACTIONS (6)
  - Skin exfoliation [Unknown]
  - Weight increased [Unknown]
  - Eye pruritus [Unknown]
  - Ocular hyperaemia [Unknown]
  - Pruritus [Unknown]
  - Menstruation irregular [Unknown]
